FAERS Safety Report 18952268 (Version 1)
Quarter: 2021Q1

REPORT INFORMATION
  Report Type: Spontaneous
  Country: US (occurrence: US)
  Receive Date: 20210301
  Receipt Date: 20210301
  Transmission Date: 20210420
  Serious: No
  Sender: FDA-Public Use
  Company Number: US-ASTRAZENECA-2021A087551

PATIENT
  Sex: Female
  Weight: 108.9 kg

DRUGS (1)
  1. BYDUREON BCISE [Suspect]
     Active Substance: EXENATIDE
     Indication: HAEMOGLOBIN ABNORMAL
     Route: 058
     Dates: start: 20210101

REACTIONS (2)
  - Mass [Unknown]
  - Injection site nodule [Unknown]
